FAERS Safety Report 7207606-5 (Version None)
Quarter: 2011Q1

REPORT INFORMATION
  Report Type: 
  Country: None (occurrence: None)
  Receive Date: 20110103
  Receipt Date: 20101222
  Transmission Date: 20110831
  Serious: Yes (Death)
  Sender: FDA-Public Use
  Company Number: RU-GENENTECH-311674

PATIENT
  Age: 35 Year
  Sex: Female

DRUGS (1)
  1. MABTHERA [Suspect]
     Indication: RHEUMATOID ARTHRITIS
     Dosage: 1000 MG, UNK
     Route: 042
     Dates: start: 20100901, end: 20100901

REACTIONS (4)
  - URETERIC OBSTRUCTION [None]
  - RENAL FAILURE ACUTE [None]
  - CALCULUS URINARY [None]
  - HYDRONEPHROSIS [None]
